FAERS Safety Report 9168240 (Version 1)
Quarter: 2013Q1

REPORT INFORMATION
  Report Type: Other
  Country: GB (occurrence: GB)
  Receive Date: 20130318
  Receipt Date: 20130318
  Transmission Date: 20140127
  Serious: Yes (Hospitalization, Disabling)
  Sender: FDA-Public Use
  Company Number: GB-PERRIGO-13GB002613

PATIENT
  Age: 73 Year
  Sex: Male

DRUGS (1)
  1. IBUPROFEN 16028/0013 200 MG [Suspect]
     Indication: MYALGIA
     Dosage: UNK
     Route: 048
     Dates: end: 20121101

REACTIONS (5)
  - Tubulointerstitial nephritis [Recovering/Resolving]
  - Decreased appetite [Unknown]
  - Gout [Unknown]
  - Myalgia [Recovered/Resolved]
  - Hypophagia [Unknown]
